FAERS Safety Report 4581943-5 (Version None)
Quarter: 2005Q1

REPORT INFORMATION
  Report Type: 
  Country: None (occurrence: None)
  Receive Date: 20050127
  Receipt Date: 20040910
  Transmission Date: 20050727
  Serious: No
  Sender: FDA-Public Use
  Company Number: USA040977950

PATIENT
  Sex: Female

DRUGS (2)
  1. STRATTERA [Suspect]
  2. ZOLOFT [Concomitant]

REACTIONS (1)
  - DEPRESSION [None]
